FAERS Safety Report 23410139 (Version 1)
Quarter: 2024Q1

REPORT INFORMATION
  Report Type: Report from Study
  Country: US (occurrence: US)
  Receive Date: 20240117
  Receipt Date: 20240117
  Transmission Date: 20240409
  Serious: No
  Sender: FDA-Public Use
  Company Number: US-ALXN-202401USA000981US

PATIENT
  Sex: Male

DRUGS (1)
  1. ULTOMIRIS [Suspect]
     Active Substance: RAVULIZUMAB-CWVZ
     Indication: Myasthenia gravis
     Dosage: UNK
     Route: 065
     Dates: end: 20231117

REACTIONS (7)
  - Treatment failure [Unknown]
  - Muscular weakness [Unknown]
  - Weight decreased [Unknown]
  - Speech disorder [Unknown]
  - Mastication disorder [Unknown]
  - Impaired driving ability [Unknown]
  - Eyelid ptosis [Unknown]
